FAERS Safety Report 9158661 (Version 1)
Quarter: 2013Q1

REPORT INFORMATION
  Report Type: Spontaneous
  Country: IT (occurrence: IT)
  Receive Date: 20130312
  Receipt Date: 20130312
  Transmission Date: 20140127
  Serious: Yes (Other)
  Sender: FDA-Public Use
  Company Number: IT-ELI_LILLY_AND_COMPANY-IT201303000862

PATIENT
  Age: 58 Year
  Sex: Male

DRUGS (7)
  1. HUMALOG LISPRO [Suspect]
     Indication: DIABETES MELLITUS
     Dosage: 50 IU, QD
     Route: 058
     Dates: start: 20070101, end: 20120902
  2. LANTUS [Concomitant]
     Indication: DIABETES MELLITUS
     Dosage: 20 IU, QD
     Route: 058
     Dates: start: 20070101, end: 20120902
  3. TACHIPIRINA [Concomitant]
     Indication: PAIN
     Dosage: 500 MG, UNK
     Route: 048
     Dates: start: 20070101, end: 20120902
  4. KCL-RETARD [Concomitant]
     Indication: HYPOKALAEMIA
     Dosage: 600 MG, UNK
     Route: 048
     Dates: start: 20110101, end: 20120902
  5. PEPTAZOL                           /01263204/ [Concomitant]
     Indication: PROPHYLAXIS AGAINST GASTROINTESTINAL ULCER
     Dosage: 40 MG, UNK
     Route: 048
     Dates: start: 20110101, end: 20120902
  6. KEPPRA [Concomitant]
     Indication: BRAIN NEOPLASM
     Dosage: 500 MG, UNK
     Route: 048
     Dates: start: 20110101, end: 20120902
  7. DIAMOX                                  /CAN/ [Concomitant]
     Indication: OEDEMA
     Dosage: 250 MG, UNK
     Route: 048
     Dates: start: 20110101, end: 20120902

REACTIONS (2)
  - Hypoglycaemia [Recovering/Resolving]
  - Confusional state [Recovering/Resolving]
